FAERS Safety Report 5720014-9 (Version None)
Quarter: 2008Q2

REPORT INFORMATION
  Report Type: 
  Country: None (occurrence: None)
  Receive Date: 20080424
  Receipt Date: 20080424
  Transmission Date: 20081010
  Serious: No
  Sender: FDA-Public Use
  Company Number: None

PATIENT
  Age: 72 Year
  Sex: Male
  Weight: 92.9 kg

DRUGS (1)
  1. MOXIFLOXACIN HCL [Suspect]
     Indication: SINUSITIS
     Dosage: 400 MG EVERY DAY PO
     Route: 048
     Dates: start: 20071201, end: 20071225

REACTIONS (1)
  - RASH [None]
